FAERS Safety Report 20096441 (Version 1)
Quarter: 2021Q4

REPORT INFORMATION
  Report Type: Spontaneous
  Country: US (occurrence: US)
  Receive Date: 20211122
  Receipt Date: 20211122
  Transmission Date: 20220303
  Serious: No
  Sender: FDA-Public Use
  Company Number: US-PFIZER INC-202101558444

PATIENT
  Age: 55 Year
  Sex: Female

DRUGS (2)
  1. IBRANCE [Suspect]
     Active Substance: PALBOCICLIB
     Dosage: 125 MG, CYCLIC (DAYS 1 THROUGH 21 OF EACH 28 DAY CYCLE)
     Route: 048
     Dates: start: 20211031
  2. LETROZOLE [Concomitant]
     Active Substance: LETROZOLE
     Dosage: UNK

REACTIONS (1)
  - Nausea [Unknown]

NARRATIVE: CASE EVENT DATE: 20210101
